FAERS Safety Report 18666242 (Version 1)
Quarter: 2020Q4

REPORT INFORMATION
  Report Type: Spontaneous
  Country: IE (occurrence: IE)
  Receive Date: 20201226
  Receipt Date: 20201226
  Transmission Date: 20210114
  Serious: Yes (Hospitalization)
  Sender: FDA-Public Use
  Company Number: NVSC2020IE338966

PATIENT
  Age: 76 Year
  Sex: Male
  Weight: 67 kg

DRUGS (10)
  1. CARBOPLATIN. [Suspect]
     Active Substance: CARBOPLATIN
     Indication: PRODUCT USED FOR UNKNOWN INDICATION
     Dosage: 1 DF (21D)
     Route: 065
     Dates: start: 20200609, end: 20200630
  2. DOXORUBICIN HYDROCHLORIDE. [Suspect]
     Active Substance: DOXORUBICIN HYDROCHLORIDE
     Indication: PRODUCT USED FOR UNKNOWN INDICATION
     Dosage: 1 DF (21D)
     Route: 065
     Dates: start: 20200609, end: 20200630
  3. CARBOPLATIN. [Suspect]
     Active Substance: CARBOPLATIN
     Dosage: 2 DF, QW
     Route: 065
     Dates: start: 20200720, end: 20200825
  4. PACLITAXEL. [Suspect]
     Active Substance: PACLITAXEL
     Indication: NON-SMALL CELL LUNG CANCER
     Dosage: 135 MG/M2 (21D)
     Route: 042
     Dates: start: 20200609, end: 20200630
  5. VINCRISTINE [Suspect]
     Active Substance: VINCRISTINE
     Indication: PRODUCT USED FOR UNKNOWN INDICATION
     Dosage: 1 DF (21D)
     Route: 065
     Dates: start: 20200609, end: 20200630
  6. CYTARABINE. [Suspect]
     Active Substance: CYTARABINE
     Indication: NON-SMALL CELL LUNG CANCER
     Dosage: 1 DF (21D)
     Route: 065
     Dates: start: 20200609, end: 20200630
  7. SODIUM CHLORIDE. [Suspect]
     Active Substance: SODIUM CHLORIDE
     Indication: MEDICATION DILUTION
     Dosage: 1 DF (21D)
     Route: 042
     Dates: start: 20200609, end: 20200630
  8. CYTARABINE. [Suspect]
     Active Substance: CYTARABINE
     Dosage: 2 DF, QW
     Route: 065
     Dates: start: 20200720, end: 20200825
  9. VINCRISTINE [Suspect]
     Active Substance: VINCRISTINE
     Dosage: 2 DF, QW
     Route: 065
     Dates: start: 20200720, end: 20200825
  10. DOXORUBICIN HYDROCHLORIDE. [Suspect]
     Active Substance: DOXORUBICIN HYDROCHLORIDE
     Dosage: 2 DF, QW
     Route: 065
     Dates: start: 20200720, end: 20200825

REACTIONS (3)
  - Product use in unapproved indication [Unknown]
  - Off label use [Unknown]
  - Presyncope [Recovered/Resolved]

NARRATIVE: CASE EVENT DATE: 20200609
